FAERS Safety Report 23829206 (Version 1)
Quarter: 2024Q2

REPORT INFORMATION
  Report Type: Report from Study
  Country: US (occurrence: US)
  Receive Date: 20240508
  Receipt Date: 20240508
  Transmission Date: 20240715
  Serious: Yes (Death, Hospitalization)
  Sender: FDA-Public Use
  Company Number: US-ABBVIE-5747777

PATIENT
  Age: 78 Year
  Sex: Female
  Weight: 68.038 kg

DRUGS (1)
  1. CREON [Suspect]
     Active Substance: PANCRELIPASE AMYLASE\PANCRELIPASE LIPASE\PANCRELIPASE PROTEASE
     Indication: Pancreatic carcinoma
     Dosage: FORM STRENGTH: 12000 UNIT
     Route: 048

REACTIONS (2)
  - Pancreatic carcinoma [Fatal]
  - Failure to thrive [Fatal]

NARRATIVE: CASE EVENT DATE: 20240429
